FAERS Safety Report 10260846 (Version 2)
Quarter: 2014Q2

REPORT INFORMATION
  Report Type: Spontaneous
  Country: GB (occurrence: None)
  Receive Date: 20140623
  Receipt Date: 20140624
  Transmission Date: 20141212
  Serious: Yes (Other)
  Sender: FDA-Public Use
  Company Number: AUR-APL-2014-06496

PATIENT
  Age: 74 Year
  Sex: Male

DRUGS (5)
  1. BISOPROLOL [Suspect]
     Indication: PRODUCT USED FOR UNKNOWN INDICATION
  2. ATORVASTATIN [Suspect]
     Indication: PRODUCT USED FOR UNKNOWN INDICATION
  3. ALLOPURINOL (ALLOPURINOL) [Concomitant]
  4. ASPIRIN (ACETYLSALICYLIC ACID) [Concomitant]
  5. CANDESARTAN [Concomitant]

REACTIONS (6)
  - Chest pain [None]
  - Tinea pedis [None]
  - Blood cholesterol abnormal [None]
  - Dyspnoea [None]
  - Loss of consciousness [None]
  - Infection [None]
